FAERS Safety Report 10236384 (Version 1)
Quarter: 2014Q2

REPORT INFORMATION
  Report Type: Report from Study
  Country: IL (occurrence: IL)
  Receive Date: 20140613
  Receipt Date: 20140613
  Transmission Date: 20141212
  Serious: Yes (Hospitalization)
  Sender: FDA-Public Use
  Company Number: PHHY2014IL071912

PATIENT
  Sex: Female

DRUGS (2)
  1. GILENYA [Suspect]
     Indication: MULTIPLE SCLEROSIS
     Dosage: 0.5 MG, QD
     Route: 048
     Dates: start: 20130407
  2. STRATTERA [Concomitant]

REACTIONS (3)
  - Synovial cyst [Recovered/Resolved]
  - Localised oedema [Recovered/Resolved]
  - Musculoskeletal stiffness [Not Recovered/Not Resolved]
